FAERS Safety Report 13221572 (Version 2)
Quarter: 2018Q1

REPORT INFORMATION
  Report Type: Other
  Country: US (occurrence: US)
  Receive Date: 20170211
  Receipt Date: 20180130
  Transmission Date: 20180508
  Serious: No
  Sender: FDA-Public Use
  Company Number: US-ACORDA-ACO_131146_2016

PATIENT
  Sex: Male

DRUGS (3)
  1. INDIGESTION PILLS [Concomitant]
     Indication: DYSPEPSIA
     Dosage: UNK
  2. BLOOD PRESSURE PILLS [Concomitant]
     Active Substance: UNSPECIFIED INGREDIENT
     Indication: HYPERTENSION
     Dosage: UNK
  3. AMPYRA [Suspect]
     Active Substance: DALFAMPRIDINE
     Indication: MULTIPLE SCLEROSIS
     Dosage: 10 MG, BID
     Route: 048

REACTIONS (2)
  - Dark circles under eyes [Not Recovered/Not Resolved]
  - Condition aggravated [Not Recovered/Not Resolved]
